FAERS Safety Report 18948494 (Version 1)
Quarter: 2021Q1

REPORT INFORMATION
  Report Type: Spontaneous
  Country: US (occurrence: US)
  Receive Date: 20210226
  Receipt Date: 20210226
  Transmission Date: 20210420
  Serious: No
  Sender: FDA-Public Use
  Company Number: US-ROCHE-2560206

PATIENT
  Sex: Male

DRUGS (1)
  1. XOLAIR [Suspect]
     Active Substance: OMALIZUMAB
     Indication: ASTHMA
     Route: 058
     Dates: start: 201812

REACTIONS (5)
  - Dizziness [Unknown]
  - Drug ineffective [Unknown]
  - Hyperhidrosis [Unknown]
  - Vertigo [Unknown]
  - Vomiting [Unknown]
